FAERS Safety Report 4999828-9 (Version None)
Quarter: 2006Q2

REPORT INFORMATION
  Report Type: 
  Country: None (occurrence: None)
  Receive Date: 20060511
  Receipt Date: 20060503
  Transmission Date: 20061013
  Serious: Yes (Hospitalization)
  Sender: FDA-Public Use
  Company Number: 2006UW08683

PATIENT
  Age: 25044 Day
  Sex: Female
  Weight: 72.3 kg

DRUGS (14)
  1. IRESSA [Suspect]
     Indication: SQUAMOUS CELL CARCINOMA
     Route: 048
     Dates: start: 20060105, end: 20060424
  2. RADIATION [Suspect]
     Indication: SQUAMOUS CELL CARCINOMA
     Dosage: TOTAL 68.49 GY
     Dates: start: 20060227, end: 20060425
  3. TAXOTERE [Suspect]
     Indication: SQUAMOUS CELL CARCINOMA
     Route: 042
     Dates: start: 20060227, end: 20060403
  4. TAXOTERE [Suspect]
     Dosage: DAY 22
     Route: 042
     Dates: start: 20060127
  5. TAXOTERE [Suspect]
     Dosage: DAY 1
     Route: 042
     Dates: start: 20060105
  6. CARBOPLATIN [Suspect]
     Indication: SQUAMOUS CELL CARCINOMA
     Dosage: DAY 22
     Route: 042
     Dates: start: 20060127
  7. CARBOPLATIN [Suspect]
     Dosage: DAY 1
     Route: 042
     Dates: start: 20060105
  8. FLUOROURACIL [Suspect]
     Indication: SQUAMOUS CELL CARCINOMA
     Dosage: DAY 1-43
     Dates: start: 20060105, end: 20060216
  9. SENNA [Concomitant]
     Indication: CONSTIPATION
     Route: 048
  10. PROTONIX [Concomitant]
     Indication: GASTROOESOPHAGEAL REFLUX DISEASE
  11. GABAPENTIN [Concomitant]
     Indication: NEUROPATHY
  12. ACTOS [Concomitant]
     Indication: DIABETES MELLITUS
  13. DURAGESIC-100 [Concomitant]
     Indication: PAIN
  14. LORTAB [Concomitant]
     Indication: PAIN
     Dosage: Q4-6 HR
     Dates: start: 20060120

REACTIONS (1)
  - SKIN INFECTION [None]
